FAERS Safety Report 4301225-6 (Version None)
Quarter: 2004Q1

REPORT INFORMATION
  Report Type: 
  Country: None (occurrence: None)
  Receive Date: 20040218
  Receipt Date: 20031112
  Transmission Date: 20041129
  Serious: No
  Sender: FDA-Public Use
  Company Number: 2003-11-0864

PATIENT
  Sex: Female

DRUGS (2)
  1. PEG-INTRON [Suspect]
     Route: 058
  2. REBETOL [Suspect]
     Route: 048

REACTIONS (7)
  - COUGH [None]
  - DIZZINESS [None]
  - DYSPHAGIA [None]
  - FATIGUE [None]
  - NAUSEA [None]
  - PHARYNGOLARYNGEAL PAIN [None]
  - STOMATITIS [None]
